FAERS Safety Report 8190239-4 (Version None)
Quarter: 2012Q1

REPORT INFORMATION
  Report Type: 
  Country: None (occurrence: None)
  Receive Date: 20120307
  Receipt Date: 20120222
  Transmission Date: 20120608
  Serious: Yes (Hospitalization, Other)
  Sender: FDA-Public Use
  Company Number: FR-AMGEN-FRASP2011061211

PATIENT
  Age: 68 Year
  Sex: Female

DRUGS (8)
  1. CELEBREX [Suspect]
     Dosage: 200 MG, 1X/DAY
     Route: 048
  2. METHOTREXATE SODIUM [Suspect]
     Dosage: 20 MG, WEEKLY
     Dates: start: 19920101
  3. ENBREL [Suspect]
     Indication: RHEUMATOID ARTHRITIS
     Dosage: 50 MG, WEEKLY
     Route: 058
     Dates: start: 20101101
  4. ACTONEL [Suspect]
     Dosage: 75 MG, 2X/MONTH
     Route: 048
  5. LANSOPRAZOLE [Suspect]
     Dosage: 15 MG, AS NEEDED
     Route: 048
  6. PREDNISONE TAB [Concomitant]
     Dosage: UNK
     Dates: end: 20110801
  7. LEUCOVORIN CALCIUM [Suspect]
     Dosage: 20 MG, WEEKLY
     Route: 048
  8. CALTRATE + D                       /00188401/ [Suspect]
     Dosage: 1 DF, 1X/DAY
     Route: 048

REACTIONS (5)
  - DEMENTIA [None]
  - WEIGHT DECREASED [None]
  - PERSECUTORY DELUSION [None]
  - SCHIZOPHRENIA [None]
  - HALLUCINATION, AUDITORY [None]
